FAERS Safety Report 9421136 (Version 2)
Quarter: 2013Q4

REPORT INFORMATION
  Report Type: Spontaneous
  Country: GB (occurrence: GB)
  Receive Date: 20130722
  Receipt Date: 20131028
  Transmission Date: 20140711
  Serious: Yes (Death, Other)
  Sender: FDA-Public Use
  Company Number: 2013036934

PATIENT
  Age: 49 Year
  Sex: Male

DRUGS (5)
  1. PRIVIGEN (IMMUNE GLOBULIN INTRAVENOUS (HUMAN) 10% LIQUID) [Suspect]
     Indication: TOXIC SHOCK SYNDROME
     Dosage: 2000 MG/KG (2 G/KG); INFUSION RATE: 0.3 ML/KG/HR FOR 1 HR., DOUBLED EVERY 30 MIN. THEREAFTER, SUPPOSED TO 4.8 ML/KG/HR
     Route: 042
     Dates: start: 20130623, end: 20130623
  2. BENZYLPENICILLIN (BENZYLPENICILLIN) [Concomitant]
  3. CLINDAMYCIN (CLINDAMYCIN) [Concomitant]
  4. FLUCLOXACILLIN (FLUCLOXACILLIN) [Concomitant]
  5. PANTOPRAZOLE (PANTOPRAZOLE) [Concomitant]

REACTIONS (1)
  - Cardiac arrest [None]
